FAERS Safety Report 6049289-6 (Version None)
Quarter: 2009Q1

REPORT INFORMATION
  Report Type: 
  Country: None (occurrence: None)
  Receive Date: 20090123
  Receipt Date: 20090114
  Transmission Date: 20090719
  Serious: Yes (Other)
  Sender: FDA-Public Use
  Company Number: IN-ROXANE LABORATORIES, INC.-2009-RO-00065RO

PATIENT
  Age: 26 Year
  Sex: Female
  Weight: 50 kg

DRUGS (3)
  1. LIDOCAINE [Suspect]
     Indication: INFILTRATION ANAESTHESIA
     Dosage: 20MG
  2. THIOPENTAL SODIUM [Concomitant]
     Route: 042
  3. OXYGEN [Concomitant]

REACTIONS (3)
  - CONVULSION [None]
  - INCORRECT ROUTE OF DRUG ADMINISTRATION [None]
  - NEUROTOXICITY [None]
